FAERS Safety Report 21883455 (Version 3)
Quarter: 2023Q1

REPORT INFORMATION
  Report Type: Spontaneous
  Country: BE (occurrence: BE)
  Receive Date: 20230119
  Receipt Date: 20230320
  Transmission Date: 20230417
  Serious: Yes (Other)
  Sender: FDA-Public Use
  Company Number: BE-BRISTOL-MYERS SQUIBB COMPANY-2023-002670

PATIENT
  Age: 66 Year
  Sex: Female

DRUGS (8)
  1. BORTEZOMIB [Suspect]
     Active Substance: BORTEZOMIB
     Indication: Plasma cell myeloma
     Dosage: UNK(TOTAL THREE CYCLES)
     Route: 065
  2. BORTEZOMIB [Suspect]
     Active Substance: BORTEZOMIB
     Indication: Chronic leukaemia
  3. LENALIDOMIDE [Suspect]
     Active Substance: LENALIDOMIDE
     Indication: Plasma cell myeloma
     Dosage: 5 MILLIGRAM (LOW DOSE)
     Route: 065
  4. LENALIDOMIDE [Suspect]
     Active Substance: LENALIDOMIDE
     Dosage: UNK(TOTAL THREE CYCLES )
     Route: 065
  5. DEXAMETHASONE [Suspect]
     Active Substance: DEXAMETHASONE
     Indication: Plasma cell myeloma
     Dosage: UNK(TOTAL THREE CYCLES)
     Route: 065
  6. DEXAMETHASONE [Suspect]
     Active Substance: DEXAMETHASONE
     Indication: Chronic leukaemia
  7. HYDROXYUREA [Suspect]
     Active Substance: HYDROXYUREA
     Indication: Plasma cell myeloma
     Dosage: UNK (CYCLICAL)
  8. HYDROXYUREA [Suspect]
     Active Substance: HYDROXYUREA
     Indication: Chronic leukaemia

REACTIONS (5)
  - Nephrotic syndrome [Unknown]
  - Nervous system disorder [Unknown]
  - Therapy partial responder [Unknown]
  - Off label use [Unknown]
  - Cytopenia [Unknown]
